FAERS Safety Report 17795391 (Version 1)
Quarter: 2020Q2

REPORT INFORMATION
  Report Type: Spontaneous
  Country: US (occurrence: US)
  Receive Date: 20200515
  Receipt Date: 20200515
  Transmission Date: 20200714
  Serious: No
  Sender: FDA-Public Use
  Company Number: US-ASTRAZENECA-2019SF88168

PATIENT
  Sex: Female
  Weight: 7.3 kg

DRUGS (3)
  1. SYNAGIS [Suspect]
     Active Substance: PALIVIZUMAB
     Dosage: 50 MG/0.5 ML VL LIQUID WITH DOSE 50 MG/KG MONTHLY.
     Route: 030
     Dates: start: 20191211
  2. IRON [Concomitant]
     Active Substance: IRON
     Dosage: 160 (50) MG.
     Route: 048
  3. MULTI VITAMIN [Concomitant]
     Active Substance: VITAMINS
     Route: 048

REACTIONS (1)
  - Rash [Unknown]
